FAERS Safety Report 16282384 (Version 1)
Quarter: 2019Q2

REPORT INFORMATION
  Report Type: Report from Study
  Country: ES (occurrence: ES)
  Receive Date: 20190507
  Receipt Date: 20190507
  Transmission Date: 20190711
  Serious: Yes (Hospitalization)
  Sender: FDA-Public Use
  Company Number: ES-SA-2019SA121545

PATIENT
  Sex: Female

DRUGS (4)
  1. ADIRO [Concomitant]
     Active Substance: ASPIRIN
     Dosage: 1-0-0, QD
     Route: 048
  2. ZALDIAR [Concomitant]
     Active Substance: ACETAMINOPHEN\TRAMADOL HYDROCHLORIDE
     Dosage: 2-1-1, TID
     Route: 048
  3. INSULIN GLARGINE [Suspect]
     Active Substance: INSULIN GLARGINE
     Indication: TYPE 2 DIABETES MELLITUS
     Dosage: 38 IU
     Route: 058
  4. ENALAPRIL [Concomitant]
     Active Substance: ENALAPRIL
     Indication: HYPERTENSION
     Dosage: 1-0-1, BID
     Route: 048

REACTIONS (2)
  - Hypoglycaemia [Recovered/Resolved]
  - Blood pressure increased [Recovered/Resolved]
